FAERS Safety Report 25309214 (Version 3)
Quarter: 2025Q2

REPORT INFORMATION
  Report Type: Spontaneous
  Country: US (occurrence: US)
  Receive Date: 20250513
  Receipt Date: 20250624
  Transmission Date: 20250716
  Serious: Yes (Hospitalization, Other)
  Sender: ALEXION PHARMACEUTICALS
  Company Number: US-AstraZeneca-CH-00865754A

PATIENT
  Age: 67 Year
  Weight: 76.7 kg

DRUGS (15)
  1. BRILINTA [Suspect]
     Active Substance: TICAGRELOR
     Dosage: 90 MILLIGRAM, BID
  2. ACETAMINOPHEN [Concomitant]
     Active Substance: ACETAMINOPHEN
     Dosage: UNK, Q8H
  3. AMLODIPINE [Concomitant]
     Active Substance: AMLODIPINE BESYLATE
     Dosage: 10 MILLIGRAM, QD
  4. AMITRIPTYLINE [Concomitant]
     Active Substance: AMITRIPTYLINE
     Dosage: 10 MILLIGRAM, QD
  5. ASPIRIN [Concomitant]
     Active Substance: ASPIRIN
     Dosage: 81 MILLIGRAM, QD
  6. CARVEDILOL [Concomitant]
     Active Substance: CARVEDILOL
     Dosage: 3.125 MILLIGRAM, BID
  7. CIPROFLOXACIN [Concomitant]
     Active Substance: CIPROFLOXACIN
     Route: 065
  8. EZETIMIBE [Concomitant]
     Active Substance: EZETIMIBE
     Dosage: 10 MILLIGRAM, QD
  9. GABAPENTIN [Concomitant]
     Active Substance: GABAPENTIN
     Dosage: 600 MILLIGRAM, BID
  10. MECLIZINE [Concomitant]
     Active Substance: MECLIZINE HYDROCHLORIDE
     Dosage: 12.5 MILLIGRAM, TID
  11. METFORMIN HYDROCHLORIDE [Concomitant]
     Active Substance: METFORMIN HYDROCHLORIDE
     Dosage: 500 MILLIGRAM, QD
  12. MIRTAZAPINE [Concomitant]
     Active Substance: MIRTAZAPINE
  13. First pantoprazole [Concomitant]
     Dosage: 40 MILLIGRAM, QD
  14. PRASUGREL [Concomitant]
     Active Substance: PRASUGREL
     Dosage: 10 MILLIGRAM, QD
  15. Ag pravastatin [Concomitant]
     Dosage: 10 MILLIGRAM, QD

REACTIONS (23)
  - Drug hypersensitivity [Recovered/Resolved]
  - Blood creatinine increased [Unknown]
  - Blood loss anaemia [Unknown]
  - Alcohol use [Unknown]
  - Deafness [Unknown]
  - Mononeuropathy [Unknown]
  - Neoplasm malignant [Unknown]
  - Back pain [Unknown]
  - Headache [Unknown]
  - Vision blurred [Unknown]
  - Neck pain [Unknown]
  - Photophobia [Unknown]
  - Urticaria [Unknown]
  - Myalgia [Unknown]
  - Nausea [Unknown]
  - Diplopia [Unknown]
  - Ataxia [Unknown]
  - Dyspnoea [Unknown]
  - Red blood cell count decreased [Unknown]
  - Haemoglobin decreased [Unknown]
  - Haematocrit decreased [Unknown]
  - Platelet count increased [Unknown]
  - Glomerular filtration rate decreased [Unknown]
